FAERS Safety Report 10863746 (Version 1)
Quarter: 2015Q1

REPORT INFORMATION
  Report Type: Spontaneous
  Country: US (occurrence: US)
  Receive Date: 20150223
  Receipt Date: 20150223
  Transmission Date: 20150721
  Serious: No
  Sender: FDA-Public Use
  Company Number: US-CELGENEUS-USA-2014105591

PATIENT
  Age: 72 Year
  Sex: Male

DRUGS (1)
  1. REVLIMID [Suspect]
     Active Substance: LENALIDOMIDE
     Indication: PLASMA CELL MYELOMA
     Dosage: 25 MILLIGRAM
     Route: 048
     Dates: start: 20141013, end: 20141026

REACTIONS (6)
  - Tremor [Recovered/Resolved]
  - Vision blurred [Recovered/Resolved]
  - Rash [Recovered/Resolved]
  - Photophobia [Recovered/Resolved]
  - Urinary retention [Recovered/Resolved]
  - Lymph node pain [Recovered/Resolved]

NARRATIVE: CASE EVENT DATE: 20141013
